FAERS Safety Report 14457054 (Version 2)
Quarter: 2018Q1

REPORT INFORMATION
  Report Type: Spontaneous
  Country: US (occurrence: US)
  Receive Date: 20180130
  Receipt Date: 20180305
  Transmission Date: 20180509
  Serious: Yes (Other)
  Sender: FDA-Public Use
  Company Number: US-DRREDDYS-USA/USA/18/0095935

PATIENT
  Age: 38 Year
  Sex: Male

DRUGS (7)
  1. VANCOMYCIN [Concomitant]
     Active Substance: VANCOMYCIN
     Indication: OTITIS MEDIA
  2. OLANZAPINE FILM-COATED TABLET [Suspect]
     Active Substance: OLANZAPINE
     Indication: AGITATION
     Route: 065
  3. CEFTRIAXONE. [Concomitant]
     Active Substance: CEFTRIAXONE
     Indication: OTITIS MEDIA
  4. CEFTRIAXONE. [Concomitant]
     Active Substance: CEFTRIAXONE
     Indication: MENINGITIS
     Route: 065
  5. VANCOMYCIN [Concomitant]
     Active Substance: VANCOMYCIN
     Indication: MENINGITIS
     Route: 065
  6. METRONIDAZOLE. [Concomitant]
     Active Substance: METRONIDAZOLE
     Indication: MENINGITIS
     Route: 065
  7. METRONIDAZOLE. [Concomitant]
     Active Substance: METRONIDAZOLE
     Indication: OTITIS MEDIA

REACTIONS (2)
  - Acute generalised exanthematous pustulosis [Recovering/Resolving]
  - Drug hypersensitivity [Recovering/Resolving]
